FAERS Safety Report 10753345 (Version 1)
Quarter: 2015Q1

REPORT INFORMATION
  Report Type: Spontaneous
  Country: IN (occurrence: None)
  Receive Date: 20150129
  Receipt Date: 20150129
  Transmission Date: 20150721
  Serious: Yes (Hospitalization, Other)
  Sender: FDA-Public Use
  Company Number: IN-2015VAL000090

PATIENT

DRUGS (6)
  1. EPHEDRINE [Suspect]
     Active Substance: EPHEDRINE
     Indication: MATERNAL EXPOSURE DURING PREGNANCY
  2. METHYLDOPA (METHYLDOPA) [Suspect]
     Active Substance: METHYLDOPA
     Indication: MATERNAL EXPOSURE DURING PREGNANCY
  3. METOPROLOL TARTRATE (METOPROLOL TARTRATE) UNKNOWN [Suspect]
     Active Substance: METOPROLOL TARTRATE
     Indication: MATERNAL EXPOSURE DURING PREGNANCY
  4. AMLODIPINE [Suspect]
     Active Substance: AMLODIPINE BESYLATE
     Indication: MATERNAL EXPOSURE DURING PREGNANCY
  5. LIGNOCAINE /00033401/ [Suspect]
     Active Substance: LIDOCAINE HYDROCHLORIDE
     Indication: MATERNAL EXPOSURE DURING PREGNANCY
  6. ROPIVACAINE [Suspect]
     Active Substance: ROPIVACAINE
     Indication: MATERNAL EXPOSURE DURING PREGNANCY
     Dosage: GIVEN IN 5 INCREMENTS EVERY 10 MINUES

REACTIONS (5)
  - Maternal drugs affecting foetus [None]
  - Foetal growth restriction [None]
  - Tachycardia foetal [None]
  - Premature baby [None]
  - Caesarean section [None]
